FAERS Safety Report 9503607 (Version 1)
Quarter: 2013Q1

REPORT INFORMATION
  Report Type: Spontaneous
  Country: US (occurrence: None)
  Receive Date: 20130130
  Receipt Date: 20130130
  Transmission Date: 20140127
  Serious: Yes (Other)
  Sender: FDA-Public Use
  Company Number: US201211002192

PATIENT
  Age: 64 Year
  Sex: Male

DRUGS (6)
  1. BYDUREON [Suspect]
     Indication: TYPE 2 DIABETES MELLITUS
     Dosage: 2 MG, WEEKLY (1/W), SUBCUTANEOUS
     Route: 058
     Dates: start: 20120914, end: 20121104
  2. LOSARTAN (LOSARTAN) [Concomitant]
  3. ASPIRIN (ACETYLSALICYILIC ACID) [Concomitant]
  4. METOPROLOL (METOPROLOL) [Concomitant]
  5. METFORMIN (METFORMIN) [Concomitant]
  6. LIPITOR (ATORVASTATIN CALCIUM) [Concomitant]

REACTIONS (1)
  - Angioedema [None]
